FAERS Safety Report 15428068 (Version 3)
Quarter: 2019Q1

REPORT INFORMATION
  Report Type: Spontaneous
  Country: US (occurrence: US)
  Receive Date: 20180926
  Receipt Date: 20190104
  Transmission Date: 20190417
  Serious: Yes (Other)
  Sender: FDA-Public Use
  Company Number: US-PRINSTON PHARMACEUTICAL INC.-2018PRN00738

PATIENT
  Sex: Female
  Weight: 87.53 kg

DRUGS (10)
  1. LOSARTAN POTASSIUM. [Suspect]
     Active Substance: LOSARTAN POTASSIUM
     Indication: HYPERTENSION
     Dosage: UNK
     Dates: start: 2018
  2. CALCIUM CARBONATE / VITAMIN D [Concomitant]
     Dosage: 1 DOSAGE UNITS, 2X/DAY
  3. NEURONTIN [Concomitant]
     Active Substance: GABAPENTIN
     Dosage: 600 MG, 2X/DAY
  4. VALSARTAN. [Suspect]
     Active Substance: VALSARTAN
     Indication: HYPERTENSION
     Dosage: 320 MG, 1X/DAY
     Route: 048
     Dates: start: 201612, end: 2018
  5. VALSARTAN. [Suspect]
     Active Substance: VALSARTAN
     Dosage: 160 MG, 1X/DAY
     Dates: start: 2018, end: 2018
  6. UNSPECIFIED PAIN PILL [Concomitant]
  7. OXYCODONE / APAP [Concomitant]
     Dosage: 1 DOSAGE UNITS, 4X/DAY AS NEEDED
  8. VALSARTAN AND HYDROCHLOROTHIAZIDE [Suspect]
     Active Substance: HYDROCHLOROTHIAZIDE\VALSARTAN
     Indication: HYPERTENSION
     Dosage: 320/25 MG, 1X/DAY
  9. PRILOSEC [Concomitant]
     Active Substance: OMEPRAZOLE MAGNESIUM
  10. ALENDRONATE [Concomitant]
     Active Substance: ALENDRONATE SODIUM
     Dosage: 70 MG, 1X/WEEK

REACTIONS (13)
  - Dyspnoea [Not Recovered/Not Resolved]
  - Urinary tract infection [Recovered/Resolved]
  - Vomiting [Not Recovered/Not Resolved]
  - Product dispensing error [Recovered/Resolved]
  - Haematemesis [Unknown]
  - Sjogren^s syndrome [Unknown]
  - Nephrolithiasis [Unknown]
  - Headache [Not Recovered/Not Resolved]
  - Gingival bleeding [Not Recovered/Not Resolved]
  - Panic reaction [Unknown]
  - Blood pressure increased [Recovered/Resolved]
  - Malaise [Not Recovered/Not Resolved]
  - Fatigue [Not Recovered/Not Resolved]

NARRATIVE: CASE EVENT DATE: 2017
